FAERS Safety Report 5842628-8 (Version None)
Quarter: 2008Q3

REPORT INFORMATION
  Report Type: 
  Country: None (occurrence: None)
  Receive Date: 20080808
  Receipt Date: 20080801
  Transmission Date: 20090109
  Serious: Yes (Death)
  Sender: FDA-Public Use
  Company Number: ENZ-2008-021

PATIENT
  Age: 3 Week
  Sex: Male
  Weight: 1 kg

DRUGS (9)
  1. VIOKASE POWDER [Suspect]
     Indication: CYSTIC FIBROSIS
     Dosage: SEE IMAGE
     Dates: start: 20061121, end: 20061122
  2. VIOKASE POWDER [Suspect]
     Indication: PANCREATIC INSUFFICIENCY
     Dosage: SEE IMAGE
     Dates: start: 20061121, end: 20061122
  3. VIOKASE POWDER [Suspect]
     Indication: CYSTIC FIBROSIS
     Dosage: SEE IMAGE
     Dates: start: 20061121
  4. VIOKASE POWDER [Suspect]
     Indication: PANCREATIC INSUFFICIENCY
     Dosage: SEE IMAGE
     Dates: start: 20061121
  5. TPN [Concomitant]
  6. ,, [Concomitant]
  7. '' [Concomitant]
  8. FORTIFIER (HUMAN MILK, NUTRITIONAL SUPPLEMENT) [Concomitant]
  9. CAFFEINE CITRATE [Concomitant]

REACTIONS (5)
  - ASPIRATION [None]
  - ATELECTASIS [None]
  - DRUG DISPENSING ERROR [None]
  - INCORRECT DOSE ADMINISTERED [None]
  - OVERDOSE [None]
